FAERS Safety Report 5926547-4 (Version None)
Quarter: 2008Q4

REPORT INFORMATION
  Report Type: 
  Country: None (occurrence: None)
  Receive Date: 20081022
  Receipt Date: 20081013
  Transmission Date: 20090506
  Serious: Yes (Hospitalization, Other)
  Sender: FDA-Public Use
  Company Number: GB-ELI_LILLY_AND_COMPANY-GB200712002634

PATIENT
  Sex: Male
  Weight: 85 kg

DRUGS (4)
  1. CYMBALTA [Suspect]
     Indication: DEPRESSION
     Dosage: 60 MG, UNKNOWN
     Route: 048
     Dates: start: 20071128, end: 20071208
  2. NITRAZEPAM [Concomitant]
     Dosage: 20 MG, EACH EVENING
  3. CITALOPRAM HYDROBROMIDE [Concomitant]
     Dosage: 40 MG, DAILY (1/D)
     Route: 065
  4. INSULIN [Concomitant]
     Indication: TYPE 1 DIABETES MELLITUS
     Dosage: UNK, UNKNOWN
     Route: 065

REACTIONS (2)
  - AGGRESSION [None]
  - SUICIDAL BEHAVIOUR [None]
